FAERS Safety Report 23362345 (Version 1)
Quarter: 2024Q1

REPORT INFORMATION
  Report Type: Report from Study
  Country: CA (occurrence: CA)
  Receive Date: 20240103
  Receipt Date: 20240103
  Transmission Date: 20240409
  Serious: Yes (Hospitalization)
  Sender: FDA-Public Use
  Company Number: CA-TEVA-VS-3139213

PATIENT
  Age: 59 Year

DRUGS (4)
  1. DOXORUBICIN [Suspect]
     Active Substance: DOXORUBICIN
     Indication: Breast cancer
     Dosage: PART OF AC-DOC REGIMEN
     Route: 065
  2. DOCETAXEL [Suspect]
     Active Substance: DOCETAXEL\DOCETAXEL ANHYDROUS
     Indication: Breast cancer
     Dosage: PART OF AC-DOC REGIMEN
     Route: 065
  3. CYCLOPHOSPHAMIDE [Suspect]
     Active Substance: CYCLOPHOSPHAMIDE
     Indication: Breast cancer
     Dosage: PART OF AC-DOC REGIMEN
     Route: 065
  4. PEGFILGRASTIM [Suspect]
     Active Substance: PEGFILGRASTIM
     Indication: Prophylaxis
     Route: 065

REACTIONS (2)
  - Febrile neutropenia [Recovered/Resolved]
  - Drug ineffective [Unknown]
